FAERS Safety Report 7511138-4 (Version None)
Quarter: 2011Q2

REPORT INFORMATION
  Report Type: 
  Country: None (occurrence: None)
  Receive Date: 20110519
  Receipt Date: 20110509
  Transmission Date: 20111010
  Serious: Yes (Other)
  Sender: FDA-Public Use
  Company Number: 1000019221

PATIENT
  Age: 51 Year
  Sex: Female

DRUGS (7)
  1. ALBUTEROL SULFATE [Concomitant]
  2. CO-CODAMOL (PARACETAMOL, CODEINE) (PARACETAMOL CODEINE) [Concomitant]
  3. CITALOPRAM HYDROBROMIDE [Suspect]
     Indication: DEPRESSION
     Dosage: 80 MG (80 MG, 1 IN 1 D), ORAL
     Route: 048
     Dates: start: 20110208, end: 20110217
  4. OXYCODONE HCL [Concomitant]
  5. DICLOFENAC SODIUM [Concomitant]
  6. CITALOPRAM HYDROBROMIDE [Suspect]
     Indication: DEPRESSION
     Dosage: 60 MG (60 MG, 1 IN 1 D), ORAL
     Route: 048
     Dates: start: 20110218
  7. CITALOPRAM HYDROBROMIDE [Suspect]
     Indication: DEPRESSION
     Dosage: 20 MG (20 MG, 1 IN 1 D), ORAL
     Route: 048
     Dates: start: 20080901, end: 20090901

REACTIONS (5)
  - FEELING HOT [None]
  - URINARY TRACT INFECTION [None]
  - ACCIDENTAL OVERDOSE [None]
  - ANXIETY [None]
  - HEADACHE [None]
